FAERS Safety Report 25915514 (Version 1)
Quarter: 2025Q4

REPORT INFORMATION
  Report Type: Spontaneous
  Country: US (occurrence: US)
  Receive Date: 20251013
  Receipt Date: 20251013
  Transmission Date: 20260117
  Serious: Yes (Death)
  Sender: PFIZER
  Company Number: US-PFIZER INC-202400312309

PATIENT
  Age: 98 Year
  Sex: Female

DRUGS (1)
  1. IBRANCE [Suspect]
     Active Substance: PALBOCICLIB
     Indication: Breast cancer female
     Dosage: TAKE 1 TABLET (75 MG TOTAL) BY MOUTH 1 (ONE) TIME EACH DAY. 21 DAYS ON 7 DAYS OFF
     Route: 048

REACTIONS (1)
  - Death [Fatal]
